FAERS Safety Report 13000828 (Version 1)
Quarter: 2016Q4

REPORT INFORMATION
  Report Type: Other
  Country: GB (occurrence: IR)
  Receive Date: 20161206
  Receipt Date: 20161206
  Transmission Date: 20170207
  Serious: Yes (Hospitalization, Other)
  Sender: FDA-Public Use
  Company Number: IR-CLARIS PHARMASERVICES-1060449

PATIENT
  Age: 43 Year
  Sex: Female

DRUGS (1)
  1. METRONIDAZOLE. [Suspect]
     Active Substance: METRONIDAZOLE
     Indication: HELICOBACTER INFECTION

REACTIONS (3)
  - Cerebellar syndrome [Recovered/Resolved]
  - Deafness [Recovered/Resolved]
  - Encephalopathy [Recovered/Resolved]
